FAERS Safety Report 9344894 (Version 1)
Quarter: 2013Q2

REPORT INFORMATION
  Report Type: Spontaneous
  Country: US (occurrence: US)
  Receive Date: 20130612
  Receipt Date: 20130612
  Transmission Date: 20140414
  Serious: No
  Sender: FDA-Public Use
  Company Number: US-US-EMD SERONO, INC.-7101688

PATIENT
  Age: 39 Year
  Sex: Male

DRUGS (2)
  1. REBIF [Suspect]
     Indication: PRODUCT USED FOR UNKNOWN INDICATION
     Route: 058
     Dates: start: 20110818
  2. REBIF [Suspect]

REACTIONS (3)
  - Liver disorder [Recovered/Resolved]
  - Liver function test abnormal [Recovered/Resolved]
  - Inappropriate schedule of drug administration [Unknown]
